FAERS Safety Report 17286741 (Version 3)
Quarter: 2020Q1

REPORT INFORMATION
  Report Type: Report from Study
  Country: GB (occurrence: GB)
  Receive Date: 20200119
  Receipt Date: 20200323
  Transmission Date: 20200409
  Serious: Yes (Other)
  Sender: FDA-Public Use
  Company Number: GB-SAMSUNG BIOEPIS-SB-2020-01028

PATIENT
  Age: 60 Year
  Sex: Male

DRUGS (1)
  1. IMRALDI [Suspect]
     Active Substance: ADALIMUMAB
     Indication: RHEUMATOID ARTHRITIS
     Route: 058
     Dates: start: 20191018

REACTIONS (4)
  - Tooth abscess [Unknown]
  - Localised infection [Unknown]
  - Lower respiratory tract infection [Unknown]
  - Oropharyngeal pain [Recovering/Resolving]
